FAERS Safety Report 20393524 (Version 1)
Quarter: 2022Q1

REPORT INFORMATION
  Report Type: Spontaneous
  Country: DE (occurrence: DE)
  Receive Date: 20220128
  Receipt Date: 20220128
  Transmission Date: 20220424
  Serious: Yes (Life-Threatening)
  Sender: FDA-Public Use
  Company Number: DE-AMK-255543

PATIENT
  Age: 91 Year
  Sex: Female
  Weight: 72 kg

DRUGS (3)
  1. EDOXABAN TOSYLATE [Suspect]
     Active Substance: EDOXABAN TOSYLATE
     Indication: Atrial fibrillation
     Dosage: 60 MG, QD
     Dates: start: 20211207, end: 20211208
  2. LEVOTHYROXINE SODIUM [Concomitant]
     Active Substance: LEVOTHYROXINE SODIUM
     Indication: Product used for unknown indication
     Dosage: UNK
  3. CANDESARTAN [Concomitant]
     Active Substance: CANDESARTAN
     Indication: Product used for unknown indication
     Dosage: UNK

REACTIONS (7)
  - Skin haemorrhage [Recovering/Resolving]
  - Wound [Recovering/Resolving]
  - Skin fissures [Recovering/Resolving]
  - Wound complication [Not Recovered/Not Resolved]
  - Neuralgia [Not Recovered/Not Resolved]
  - Scab [Not Recovered/Not Resolved]
  - Nerve injury [Not Recovered/Not Resolved]

NARRATIVE: CASE EVENT DATE: 20211208
